FAERS Safety Report 4661605-6 (Version None)
Quarter: 2005Q2

REPORT INFORMATION
  Report Type: 
  Country: None (occurrence: None)
  Receive Date: 20050513
  Receipt Date: 20050222
  Transmission Date: 20051028
  Serious: Yes (Life-Threatening, Hospitalization, Disabling)
  Sender: FDA-Public Use
  Company Number: US-MERCK-0502USA02795

PATIENT
  Age: 55 Year
  Sex: Male

DRUGS (12)
  1. VIOXX [Suspect]
     Indication: ARTHRITIS
     Route: 048
     Dates: start: 20020101, end: 20021017
  2. VIOXX [Suspect]
     Route: 048
     Dates: end: 20040123
  3. VIOXX [Suspect]
     Indication: OSTEOARTHRITIS
     Route: 048
     Dates: start: 20020101, end: 20021017
  4. VIOXX [Suspect]
     Route: 048
     Dates: end: 20040123
  5. MOBIC [Concomitant]
     Route: 065
  6. GLUCOPHAGE [Concomitant]
     Route: 065
  7. HYZAAR [Concomitant]
     Indication: HYPERTENSION
     Route: 048
  8. ZOCOR [Suspect]
     Indication: HYPERLIPIDAEMIA
     Route: 048
  9. NEURONTIN [Concomitant]
     Indication: NEUROPATHY PERIPHERAL
     Route: 065
  10. MONOPRIL [Concomitant]
     Route: 048
  11. ELAVIL [Concomitant]
     Route: 048
  12. TYLENOL (CAPLET) [Concomitant]
     Route: 065

REACTIONS (18)
  - ALANINE AMINOTRANSFERASE INCREASED [None]
  - ARTHRITIS [None]
  - BALANCE DISORDER [None]
  - BLOOD CREATINE PHOSPHOKINASE INCREASED [None]
  - DRUG INEFFECTIVE [None]
  - FISTULA [None]
  - FLATULENCE [None]
  - FUNGAL SKIN INFECTION [None]
  - GASTRITIS [None]
  - HAEMATOCHEZIA [None]
  - HAEMORRHAGE [None]
  - HEADACHE [None]
  - MYALGIA [None]
  - NEUROPATHY PERIPHERAL [None]
  - RASH [None]
  - ROTATOR CUFF REPAIR [None]
  - ROTATOR CUFF SYNDROME [None]
  - SHOULDER PAIN [None]
